FAERS Safety Report 10455076 (Version 3)
Quarter: 2014Q4

REPORT INFORMATION
  Report Type: Report from Study
  Country: US (occurrence: US)
  Receive Date: 20140916
  Receipt Date: 20141024
  Transmission Date: 20150528
  Serious: No
  Sender: FDA-Public Use
  Company Number: US-AMGEN-USASP2014069692

PATIENT
  Age: 61 Year
  Sex: Female
  Weight: 54.42 kg

DRUGS (2)
  1. ENBREL [Suspect]
     Active Substance: ETANERCEPT
     Indication: RHEUMATOID ARTHRITIS
     Dosage: 50 MG, QWK
     Route: 058
     Dates: start: 20140820
  2. PREDNISONE. [Concomitant]
     Active Substance: PREDNISONE
     Dosage: 1 MG, UNK

REACTIONS (12)
  - Injection site papule [Recovering/Resolving]
  - Injection site urticaria [Recovered/Resolved]
  - Acne [Unknown]
  - Insomnia [Unknown]
  - Nasal discomfort [Unknown]
  - Injection site pruritus [Recovering/Resolving]
  - Injection site discolouration [Recovering/Resolving]
  - Fatigue [Unknown]
  - Injection site reaction [Recovered/Resolved]
  - Injection site pain [Not Recovered/Not Resolved]
  - Injection site erythema [Recovered/Resolved]
  - Injection site warmth [Recovered/Resolved]

NARRATIVE: CASE EVENT DATE: 2014
